FAERS Safety Report 12220752 (Version 5)
Quarter: 2016Q3

REPORT INFORMATION
  Report Type: Spontaneous
  Country: FI (occurrence: FI)
  Receive Date: 20160330
  Receipt Date: 20160901
  Transmission Date: 20161109
  Serious: Yes (Hospitalization)
  Sender: FDA-Public Use
  Company Number: FI-ABBVIE-16P-055-1593802-00

PATIENT
  Age: 62 Year
  Sex: Female
  Weight: 55.9 kg

DRUGS (12)
  1. CANDEMOX [Interacting]
     Active Substance: CANDESARTAN CILEXETIL
     Indication: BLOOD PRESSURE MEASUREMENT
     Route: 048
     Dates: start: 20150818
  2. DAKTACORT [Concomitant]
     Active Substance: HYDROCORTISONE\MICONAZOLE NITRATE
     Indication: PRODUCT USED FOR UNKNOWN INDICATION
  3. COPEGUS [Concomitant]
     Active Substance: RIBAVIRIN
     Route: 065
     Dates: start: 2016, end: 20160317
  4. CANDEMOX [Interacting]
     Active Substance: CANDESARTAN CILEXETIL
     Indication: HYPERTONIA
  5. ACLOVIR [Concomitant]
     Indication: PRODUCT USED FOR UNKNOWN INDICATION
  6. SIMVASTATIN. [Interacting]
     Active Substance: SIMVASTATIN
     Indication: HYPERCHOLESTEROLAEMIA
     Route: 048
     Dates: start: 20150818, end: 20160324
  7. PRIMASPAN [Concomitant]
     Active Substance: ASPIRIN
     Indication: PRODUCT USED FOR UNKNOWN INDICATION
     Dates: start: 20150818
  8. EXVIERA [Interacting]
     Active Substance: DASABUVIR
     Indication: CHRONIC HEPATITIS C
     Route: 048
     Dates: start: 20160226, end: 20160521
  9. COPEGUS [Concomitant]
     Active Substance: RIBAVIRIN
     Indication: CHRONIC HEPATITIS C
     Route: 065
     Dates: start: 20160226
  10. VIEKIRAX [Suspect]
     Active Substance: OMBITASVIR\PARITAPREVIR\RITONAVIR
     Indication: CHRONIC HEPATITIS C
     Dosage: 12.5MG/75MG/50/MG
     Route: 048
     Dates: start: 20160226, end: 20160521
  11. HEINIX [Concomitant]
     Active Substance: CETIRIZINE HYDROCHLORIDE
     Indication: PRODUCT USED FOR UNKNOWN INDICATION
  12. COPEGUS [Concomitant]
     Active Substance: RIBAVIRIN
     Route: 065
     Dates: start: 20160317

REACTIONS (8)
  - Contraindication to medical treatment [Recovered/Resolved]
  - Myalgia [Unknown]
  - Pyrexia [Unknown]
  - Drug interaction [Not Recovered/Not Resolved]
  - Blood creatine phosphokinase increased [Recovering/Resolving]
  - Oliguria [Unknown]
  - Rhabdomyolysis [Recovered/Resolved]
  - Alanine aminotransferase increased [Recovering/Resolving]

NARRATIVE: CASE EVENT DATE: 20160226
